FAERS Safety Report 14760077 (Version 3)
Quarter: 2020Q2

REPORT INFORMATION
  Report Type: Spontaneous
  Country: SK (occurrence: SK)
  Receive Date: 20180413
  Receipt Date: 20200623
  Transmission Date: 20200713
  Serious: Yes (Death, Other)
  Sender: FDA-Public Use
  Company Number: HU-ALEXION PHARMACEUTICALS INC.-A201804515

PATIENT
  Age: 11 Year
  Sex: Male
  Weight: 49.5 kg

DRUGS (3)
  1. CYCLOSPORIN A [Suspect]
     Active Substance: CYCLOSPORINE
     Indication: IMMUNOSUPPRESSION
  2. SOLIRIS [Suspect]
     Active Substance: ECULIZUMAB
     Indication: OFF LABEL USE
     Dosage: UNK
  3. SOLIRIS [Suspect]
     Active Substance: ECULIZUMAB
     Indication: THROMBOTIC MICROANGIOPATHY
     Dosage: 900 MG, QW
     Route: 042
     Dates: start: 20160706, end: 20160720

REACTIONS (5)
  - Candida infection [Fatal]
  - Immunosuppression [Unknown]
  - Off label use [Unknown]
  - Condition aggravated [Unknown]
  - Pneumonia fungal [Fatal]

NARRATIVE: CASE EVENT DATE: 20160729
